FAERS Safety Report 6742776-4 (Version None)
Quarter: 2010Q2

REPORT INFORMATION
  Report Type: 
  Country: None (occurrence: None)
  Receive Date: 20100525
  Receipt Date: 20100511
  Transmission Date: 20101027
  Serious: Yes (Hospitalization, Other)
  Sender: FDA-Public Use
  Company Number: 010373

PATIENT
  Sex: Female
  Weight: 88.9 kg

DRUGS (14)
  1. LACOSAMIDE [Suspect]
     Indication: CONVULSION
     Dosage: 250 MG BID ORAL; 250 MG BID; 150MG TABLET + 100MG TABLET ORAL; 200MG BID ORAL
     Route: 048
     Dates: start: 20100416, end: 20100416
  2. LACOSAMIDE [Suspect]
     Indication: EPILEPSY
     Dosage: 250 MG BID ORAL; 250 MG BID; 150MG TABLET + 100MG TABLET ORAL; 200MG BID ORAL
     Route: 048
     Dates: start: 20100416, end: 20100416
  3. LACOSAMIDE [Suspect]
     Indication: CONVULSION
     Dosage: 250 MG BID ORAL; 250 MG BID; 150MG TABLET + 100MG TABLET ORAL; 200MG BID ORAL
     Route: 048
     Dates: start: 20100416, end: 20100416
  4. LACOSAMIDE [Suspect]
     Indication: EPILEPSY
     Dosage: 250 MG BID ORAL; 250 MG BID; 150MG TABLET + 100MG TABLET ORAL; 200MG BID ORAL
     Route: 048
     Dates: start: 20100416, end: 20100416
  5. LACOSAMIDE [Suspect]
     Indication: CONVULSION
     Dosage: 250 MG BID ORAL; 250 MG BID; 150MG TABLET + 100MG TABLET ORAL; 200MG BID ORAL
     Route: 048
     Dates: start: 20090917
  6. LACOSAMIDE [Suspect]
     Indication: EPILEPSY
     Dosage: 250 MG BID ORAL; 250 MG BID; 150MG TABLET + 100MG TABLET ORAL; 200MG BID ORAL
     Route: 048
     Dates: start: 20090917
  7. FOLIC ACID [Concomitant]
  8. OMEPRAZOLE [Concomitant]
  9. CHILDREN'S TYLENOL COLD + FLU [Concomitant]
  10. MOTRIN [Concomitant]
  11. CELEXA [Concomitant]
  12. TUMS /00193601/ [Concomitant]
  13. LAMICTAL [Concomitant]
  14. ROBITUSSIN DM /00288801/ [Concomitant]

REACTIONS (13)
  - ANGER [None]
  - BALANCE DISORDER [None]
  - DEPRESSION [None]
  - DYSARTHRIA [None]
  - FALL [None]
  - HEADACHE [None]
  - PHOTOPHOBIA [None]
  - SLEEP DISORDER [None]
  - SOMNOLENCE [None]
  - STATUS EPILEPTICUS [None]
  - STRESS [None]
  - TANGENTIALITY [None]
  - UNRESPONSIVE TO STIMULI [None]
